FAERS Safety Report 18196821 (Version 1)
Quarter: 2020Q3

REPORT INFORMATION
  Report Type: Spontaneous
  Country: CN (occurrence: CN)
  Receive Date: 20200826
  Receipt Date: 20200826
  Transmission Date: 20201103
  Serious: Yes (Hospitalization, Other)
  Sender: FDA-Public Use
  Company Number: CN-LUPIN PHARMACEUTICALS INC.-2020-05050

PATIENT
  Age: 24 Year
  Sex: Female

DRUGS (7)
  1. METHYLPREDNISOLONE. [Suspect]
     Active Substance: METHYLPREDNISOLONE
     Indication: CONNECTIVE TISSUE DISORDER
     Dosage: UNK
     Route: 042
  2. METHYLPREDNISOLONE TABLETS [Suspect]
     Active Substance: METHYLPREDNISOLONE
     Dosage: 20 MILLIGRAM, TID
     Route: 048
  3. METHYLPREDNISOLONE TABLETS [Suspect]
     Active Substance: METHYLPREDNISOLONE
     Dosage: 5 MILLIGRAM, QD
     Route: 048
  4. MUCOPOLYSACCHARIDE POLYSULFATE [Concomitant]
     Indication: ANTIINFLAMMATORY THERAPY
     Dosage: UNK
     Route: 016
  5. METHYLPREDNISOLONE TABLETS [Suspect]
     Active Substance: METHYLPREDNISOLONE
     Dosage: 5 MILLIGRAM, TID
     Route: 048
  6. METHYLPREDNISOLONE TABLETS [Suspect]
     Active Substance: METHYLPREDNISOLONE
     Indication: CONNECTIVE TISSUE DISORDER
     Dosage: 40 MILLIGRAM, QD
     Route: 048
  7. HYDROXYCHLOROQUINE [Concomitant]
     Active Substance: HYDROXYCHLOROQUINE
     Indication: CONNECTIVE TISSUE DISORDER
     Dosage: UNK
     Route: 048

REACTIONS (6)
  - White blood cell count increased [Unknown]
  - Amylase increased [Not Recovered/Not Resolved]
  - Steroid diabetes [Recovered/Resolved]
  - Hypertriglyceridaemia [Recovered/Resolved]
  - Neutrophil count increased [Unknown]
  - Lipase increased [Not Recovered/Not Resolved]
